FAERS Safety Report 8352764-2 (Version None)
Quarter: 2012Q2

REPORT INFORMATION
  Report Type: 
  Country: None (occurrence: None)
  Receive Date: 20120509
  Receipt Date: 20120427
  Transmission Date: 20120825
  Serious: Yes (Hospitalization)
  Sender: FDA-Public Use
  Company Number: DSA_55258_2012

PATIENT
  Age: 80 Year
  Sex: Female

DRUGS (6)
  1. PREVISCAN /00789001/ [Suspect]
     Indication: PRODUCT USED FOR UNKNOWN INDICATION
     Dosage: 0.5 DF DOSAGE FORM TABLET EVERY OTHER DAY, ORAL (0.25 DF,)
     Dates: end: 20111230
  2. METFORMIN HCL [Concomitant]
  3. FLAGYL [Suspect]
     Indication: CLOSTRIDIAL INFECTION
     Dosage: 500 MG, TID, ORAL
     Route: 048
  4. LEVOTHYROXINE SODIUM [Concomitant]
  5. ESOMEPRAZOLE MAGNESIUM [Concomitant]
  6. ACETAMINOPHEN AND TRAMADOL HCL [Concomitant]

REACTIONS (1)
  - INTERNATIONAL NORMALISED RATIO INCREASED [None]
